FAERS Safety Report 9372995 (Version 2)
Quarter: 2013Q4

REPORT INFORMATION
  Report Type: Spontaneous
  Country: GB (occurrence: GB)
  Receive Date: 20130627
  Receipt Date: 20131113
  Transmission Date: 20140711
  Serious: Yes (Disabling)
  Sender: FDA-Public Use
  Company Number: GB-BRISTOL-MYERS SQUIBB COMPANY-19013028

PATIENT
  Age: 52 Year
  Sex: Male

DRUGS (4)
  1. GLUCOPHAGE XR TABS [Suspect]
     Dosage: DOSE:2000MG(500MG,2 TABS:BID)
     Route: 048
     Dates: start: 20130521, end: 20130524
  2. SITAGLIPTIN PHOSPHATE [Concomitant]
  3. SIMVASTATIN [Concomitant]
  4. FLUCONAZOLE [Concomitant]

REACTIONS (4)
  - Lethargy [Recovered/Resolved]
  - Nausea [Recovered/Resolved]
  - Diarrhoea [Recovered/Resolved]
  - Dry mouth [Not Recovered/Not Resolved]
